FAERS Safety Report 11786917 (Version 1)
Quarter: 2015Q4

REPORT INFORMATION
  Report Type: Spontaneous
  Country: US (occurrence: US)
  Receive Date: 20151130
  Receipt Date: 20151130
  Transmission Date: 20160305
  Serious: No
  Sender: FDA-Public Use
  Company Number: US-BAYER-2015-468731

PATIENT
  Age: 16 Year
  Sex: Male

DRUGS (3)
  1. TEMSIROLIMUS [Concomitant]
     Active Substance: TEMSIROLIMUS
  2. BEVACIZUMAB [Concomitant]
     Active Substance: BEVACIZUMAB
  3. SORAFENIB (RAF KINASE INHIBITOR) [Suspect]
     Active Substance: SORAFENIB
     Indication: OSTEOSARCOMA

REACTIONS (4)
  - Off label use [None]
  - Fatigue [None]
  - Drug ineffective for unapproved indication [None]
  - Mucosal inflammation [None]
